FAERS Safety Report 12722369 (Version 2)
Quarter: 2016Q4

REPORT INFORMATION
  Report Type: Spontaneous
  Country: US (occurrence: US)
  Receive Date: 20160907
  Receipt Date: 20161118
  Transmission Date: 20170207
  Serious: Yes (Hospitalization, Other)
  Sender: FDA-Public Use
  Company Number: US-SAOL THERAPEUTICS-2016SAO00573

PATIENT
  Age: 33 Year
  Sex: Male
  Weight: 61.22 kg

DRUGS (6)
  1. LIORESAL [Suspect]
     Active Substance: BACLOFEN
     Indication: MUSCLE SPASTICITY
     Dosage: 1373 ?G, \DAY
     Route: 037
     Dates: start: 20160421, end: 20160616
  2. LUNESTA [Concomitant]
     Active Substance: ESZOPICLONE
  3. ALEVE [Concomitant]
     Active Substance: NAPROXEN SODIUM
  4. LIORESAL [Suspect]
     Active Substance: BACLOFEN
     Indication: HEAD INJURY
  5. FISH OIL [Concomitant]
     Active Substance: FISH OIL
  6. DIAZEPAM. [Concomitant]
     Active Substance: DIAZEPAM

REACTIONS (7)
  - Implant site abscess [Recovered/Resolved]
  - Rash [Recovered/Resolved]
  - Muscle spasticity [Not Recovered/Not Resolved]
  - Implant site oedema [Unknown]
  - Pruritus [Recovered/Resolved]
  - Implant site erythema [Unknown]
  - Staphylococcal infection [Recovered/Resolved]

NARRATIVE: CASE EVENT DATE: 20160522
